FAERS Safety Report 21602682 (Version 1)
Quarter: 2022Q4

REPORT INFORMATION
  Report Type: Report from Study
  Country: US (occurrence: US)
  Receive Date: 20221116
  Receipt Date: 20221116
  Transmission Date: 20230112
  Serious: Yes (Other)
  Sender: FDA-Public Use
  Company Number: US-ABBVIE-4196046

PATIENT
  Sex: Female

DRUGS (3)
  1. HUMIRA [Suspect]
     Active Substance: ADALIMUMAB
     Indication: Intestinal fistula
     Dosage: FORM STRENGTH: 80MG
     Route: 058
     Dates: start: 20171016
  2. HUMIRA [Suspect]
     Active Substance: ADALIMUMAB
     Dosage: FORM STRENGTH: 80MG
     Route: 058
  3. 375 mg Apriso [Concomitant]
     Indication: Product used for unknown indication
     Dosage: CP2 /BD DISP NEED MIS 22G X 3

REACTIONS (1)
  - Surgery [Recovered/Resolved]
